FAERS Safety Report 6007699-7 (Version None)
Quarter: 2008Q4

REPORT INFORMATION
  Report Type: 
  Country: None (occurrence: None)
  Receive Date: 20081217
  Receipt Date: 20080516
  Transmission Date: 20090506
  Serious: Yes (Other)
  Sender: FDA-Public Use
  Company Number: US-ASTRAZENECA-2008UW10139

PATIENT
  Age: 43 Year
  Sex: Male
  Weight: 81.6 kg

DRUGS (6)
  1. CRESTOR [Suspect]
     Indication: BLOOD CHOLESTEROL INCREASED
     Route: 048
     Dates: start: 20071012, end: 20071201
  2. DIOVAN [Concomitant]
  3. ASPIRIN [Concomitant]
  4. NIFEDIPINE [Concomitant]
  5. LOVAZA [Concomitant]
  6. GLUCOSAMIDE [Concomitant]

REACTIONS (1)
  - BLOOD CREATINE PHOSPHOKINASE INCREASED [None]
